FAERS Safety Report 6693885-X (Version None)
Quarter: 2010Q2

REPORT INFORMATION
  Report Type: 
  Country: None (occurrence: None)
  Receive Date: 20100423
  Receipt Date: 20100415
  Transmission Date: 20101027
  Serious: Yes (Other)
  Sender: FDA-Public Use
  Company Number: PHEH2010US00488

PATIENT
  Age: 5 Year
  Sex: Male

DRUGS (1)
  1. EXJADE [Suspect]
     Dosage: 375 MG, QD
     Route: 048

REACTIONS (1)
  - LIVER DISORDER [None]
